FAERS Safety Report 9833282 (Version 2)
Quarter: 2014Q3

REPORT INFORMATION
  Report Type: Spontaneous
  Country: US (occurrence: US)
  Receive Date: 20140121
  Receipt Date: 20140723
  Transmission Date: 20150326
  Serious: Yes (Hospitalization, Disabling, Other)
  Sender: FDA-Public Use
  Company Number: US-009507513-1401USA009366

PATIENT
  Sex: Female
  Weight: 81.63 kg

DRUGS (1)
  1. NUVARING [Suspect]
     Active Substance: ETHINYL ESTRADIOL\ETONOGESTREL
     Indication: CONTRACEPTION
     Dosage: UNK
     Route: 067
     Dates: start: 20110309, end: 20110710

REACTIONS (8)
  - Sinusitis [Unknown]
  - Haemorrhage [Unknown]
  - Intracranial venous sinus thrombosis [Recovering/Resolving]
  - Maternal exposure before pregnancy [Unknown]
  - Cerebrovascular accident [Unknown]
  - Wisdom teeth removal [Unknown]
  - Infarction [Unknown]
  - Anxiety [Unknown]

NARRATIVE: CASE EVENT DATE: 201107
